FAERS Safety Report 9620207 (Version 2)
Quarter: 2013Q4

REPORT INFORMATION
  Report Type: Spontaneous
  Country: US (occurrence: US)
  Receive Date: 20131014
  Receipt Date: 20131014
  Transmission Date: 20140711
  Serious: No
  Sender: FDA-Public Use
  Company Number: US-ALLERGAN-1315232US

PATIENT
  Age: 69 Year
  Sex: Female

DRUGS (6)
  1. ALPHAGAN P [Suspect]
     Indication: GLAUCOMA
     Dosage: 2 GTT, BID
     Route: 047
  2. OCUVITE                            /01053801/ [Concomitant]
     Indication: ASTHENOPIA
     Dosage: UNK UNK, PRN
     Route: 047
  3. PATADAY [Concomitant]
     Indication: HYPERSENSITIVITY
     Dosage: UNK UNK, PRN
     Route: 047
  4. HYPERTENSION MEDICATION NOS [Concomitant]
     Indication: HYPERTENSION
     Dosage: UNK
  5. HIGH CHOLESTEROL MEDICATION NOS [Concomitant]
     Indication: BLOOD CHOLESTEROL INCREASED
     Dosage: UNK
  6. HYPOTHYROIDISM MEDICATION NOS [Concomitant]
     Indication: HYPOTHYROIDISM
     Dosage: UNK

REACTIONS (4)
  - Vitreous floaters [Recovering/Resolving]
  - Halo vision [Not Recovered/Not Resolved]
  - Cataract [Not Recovered/Not Resolved]
  - Inappropriate schedule of drug administration [Unknown]
